FAERS Safety Report 10911996 (Version 1)
Quarter: 2015Q1

REPORT INFORMATION
  Report Type: Spontaneous
  Country: US (occurrence: None)
  Receive Date: 20150310
  Receipt Date: 20150310
  Transmission Date: 20150721
  Serious: No
  Sender: FDA-Public Use
  Company Number: None

PATIENT
  Age: 50 Year
  Sex: Male

DRUGS (2)
  1. AFINITOR [Suspect]
     Active Substance: EVEROLIMUS
     Indication: RENAL CANCER
     Dosage: 2Q DAILY TOTAL 5 MG
     Route: 048
     Dates: start: 20150227, end: 20150301
  2. AFINITOR [Suspect]
     Active Substance: EVEROLIMUS
     Indication: RENAL CANCER
     Dosage: 1 Q DAILY TOTAL 5 MG
     Route: 048
     Dates: start: 20150227, end: 20150301

REACTIONS (2)
  - Nasopharyngitis [None]
  - Dyspnoea [None]

NARRATIVE: CASE EVENT DATE: 20150301
